FAERS Safety Report 5264479-8 (Version None)
Quarter: 2007Q1

REPORT INFORMATION
  Report Type: 
  Country: None (occurrence: None)
  Receive Date: 20070309
  Receipt Date: 20070226
  Transmission Date: 20070707
  Serious: Yes (Other)
  Sender: FDA-Public Use
  Company Number: 2007309457

PATIENT
  Sex: Female
  Weight: 50.8 kg

DRUGS (14)
  1. NICOTINE [Suspect]
     Dosage: TRANSDERMAL
     Route: 062
  2. CRESTOR [Concomitant]
  3. ZOCOR [Concomitant]
  4. CHOLESTEROL-AND TRIGLYCERIDE REDUCERS (CHOLESTEROL-AND TRIGLYCERIDE RE [Concomitant]
  5. DYAZIDE [Concomitant]
  6. OXYGEN (OXYGEN) [Concomitant]
  7. ZELNORM [Concomitant]
  8. PREVACID [Concomitant]
  9. CHANTIX (VARENICLINE TARTRATE) [Concomitant]
  10. LIPITOR [Concomitant]
  11. ZYRTEC [Concomitant]
  12. BENADRYL [Concomitant]
  13. ALPRAZOLAM [Concomitant]
  14. OTHER DIAGNOSTIC AGENTS (OTHER DIAGNOSTIC AGENTS) [Concomitant]

REACTIONS (2)
  - CARDIAC PACEMAKER INSERTION [None]
  - CARDIOVERSION [None]
